FAERS Safety Report 16934083 (Version 2)
Quarter: 2019Q4

REPORT INFORMATION
  Report Type: Report from Study
  Country: US (occurrence: US)
  Receive Date: 20191018
  Receipt Date: 20191024
  Transmission Date: 20200122
  Serious: Yes (Hospitalization, Other)
  Sender: FDA-Public Use
  Company Number: US-SUN PHARMACEUTICAL INDUSTRIES LTD-2019R1-224021

PATIENT
  Age: 7 Year
  Sex: Female
  Weight: 24.1 kg

DRUGS (9)
  1. TEMOZOLOMIDE. [Suspect]
     Active Substance: TEMOZOLOMIDE
     Indication: NEPHROBLASTOMA
     Dosage: 90 MILLIGRAM (FOR 5 DAYS)
     Route: 048
     Dates: start: 20190819
  2. IRINOTECAN [Suspect]
     Active Substance: IRINOTECAN
     Indication: NEPHROBLASTOMA
     Dosage: 44 MILLIGRAM (5DAYS)
     Route: 042
     Dates: start: 20190819
  3. ZYPREXA [Concomitant]
     Active Substance: OLANZAPINE
     Indication: NAUSEA
     Dosage: UNK
     Route: 065
     Dates: start: 20190819
  4. LORAZEPAM. [Concomitant]
     Active Substance: LORAZEPAM
     Indication: NAUSEA
  5. LIDOCAINE. [Concomitant]
     Active Substance: LIDOCAINE
     Indication: ANAESTHESIA
     Dosage: UNK
     Route: 065
     Dates: start: 20190819
  6. CEFIXIME. [Concomitant]
     Active Substance: CEFIXIME
     Indication: ANTIFUNGAL PROPHYLAXIS
     Dosage: UNK
     Route: 065
     Dates: start: 20190817
  7. ZYPREXA [Concomitant]
     Active Substance: OLANZAPINE
     Indication: VOMITING
  8. PALBOCICLIB [Suspect]
     Active Substance: PALBOCICLIB
     Indication: NEPHROBLASTOMA
     Dosage: UNK ( 75 MG/M2) 5 DAYS PER WEEK
     Route: 048
     Dates: start: 20190819
  9. LORAZEPAM. [Concomitant]
     Active Substance: LORAZEPAM
     Indication: VOMITING
     Dosage: UNK
     Route: 065
     Dates: start: 20190819

REACTIONS (1)
  - Sepsis [Recovered/Resolved]

NARRATIVE: CASE EVENT DATE: 20190924
